FAERS Safety Report 8989197 (Version 2)
Quarter: 2013Q1

REPORT INFORMATION
  Report Type: Spontaneous
  Country: FR (occurrence: FR)
  Receive Date: 20121228
  Receipt Date: 20130318
  Transmission Date: 20140127
  Serious: Yes (Other)
  Sender: FDA-Public Use
  Company Number: FR-JNJFOC-20120210894

PATIENT
  Sex: Male

DRUGS (8)
  1. INFLIXIMAB, RECOMBINANT [Suspect]
     Indication: CROHN^S DISEASE
     Route: 042
     Dates: start: 20110704
  2. INFLIXIMAB, RECOMBINANT [Suspect]
     Indication: CROHN^S DISEASE
     Dosage: 3RD DOSE
     Route: 042
     Dates: start: 20110818, end: 20110818
  3. INFLIXIMAB, RECOMBINANT [Suspect]
     Indication: ANKYLOSING SPONDYLITIS
     Dosage: 3RD DOSE
     Route: 042
     Dates: start: 20110818, end: 20110818
  4. INFLIXIMAB, RECOMBINANT [Suspect]
     Indication: ANKYLOSING SPONDYLITIS
     Route: 042
     Dates: start: 20110704
  5. TOPALGIC LP [Concomitant]
     Route: 065
  6. CEBUTID [Concomitant]
     Route: 065
  7. INEXIUM [Concomitant]
     Route: 065
  8. METHOTREXATE [Concomitant]
     Route: 065

REACTIONS (6)
  - Rash erythematous [Recovered/Resolved]
  - Rash pustular [Recovered/Resolved]
  - Psoriasis [Recovered/Resolved]
  - Mucocutaneous ulceration [Recovered/Resolved]
  - Skin ulcer [Recovered/Resolved]
  - Skin necrosis [Recovered/Resolved]
